FAERS Safety Report 8367731-2 (Version None)
Quarter: 2012Q2

REPORT INFORMATION
  Report Type: 
  Country: None (occurrence: None)
  Receive Date: 20120517
  Receipt Date: 20120511
  Transmission Date: 20120825
  Serious: Yes (Other)
  Sender: FDA-Public Use
  Company Number: US-GLAXOSMITHKLINE-A0977326A

PATIENT
  Age: 36 Year
  Sex: Female

DRUGS (5)
  1. PROZAC [Concomitant]
  2. MAXALT [Concomitant]
  3. KEPPRA [Concomitant]
  4. KLONOPIN [Concomitant]
  5. LAMICTAL [Suspect]
     Indication: PARTIAL SEIZURES
     Dosage: 500MG SEE DOSAGE TEXT
     Route: 048
     Dates: start: 20111101

REACTIONS (4)
  - DIZZINESS [None]
  - CONVULSION [None]
  - DIPLOPIA [None]
  - MIGRAINE [None]
